FAERS Safety Report 5679118-1 (Version None)
Quarter: 2008Q1

REPORT INFORMATION
  Report Type: 
  Country: None (occurrence: None)
  Receive Date: 20080321
  Receipt Date: 20080310
  Transmission Date: 20080703
  Serious: Yes (Hospitalization)
  Sender: FDA-Public Use
  Company Number: 2008-01760

PATIENT
  Age: 49 Year
  Sex: Female

DRUGS (3)
  1. MORPHINE SULFATE [Suspect]
     Indication: COMPLEX REGIONAL PAIN SYNDROME
     Dosage: 75 MG X 5 DOSES, INTRATHECAL; 15 MG, SINGLE, INTRATHECAL; 21 MG, DAILY, INTRATHECAL; 50 MG/ML, DAILY
     Route: 037
  2. CLONIDINE HCL [Concomitant]
  3. BUPIVACAINE [Concomitant]

REACTIONS (5)
  - CHILLS [None]
  - HYPERAESTHESIA [None]
  - MYOCLONUS [None]
  - THERAPEUTIC AGENT TOXICITY [None]
  - WITHDRAWAL SYNDROME [None]
